FAERS Safety Report 25536723 (Version 1)
Quarter: 2025Q3

REPORT INFORMATION
  Report Type: Spontaneous
  Country: MY (occurrence: MY)
  Receive Date: 20250709
  Receipt Date: 20250709
  Transmission Date: 20251021
  Serious: Yes (Death, Hospitalization)
  Sender: NOVITIUM PHARMA
  Company Number: MY-NOVITIUMPHARMA-2025MYNVP01556

PATIENT
  Age: 49 Year
  Sex: Male

DRUGS (13)
  1. DEXAMETHASONE [Suspect]
     Active Substance: DEXAMETHASONE
     Indication: Diffuse large B-cell lymphoma stage IV
  2. RITUXIMAB [Concomitant]
     Active Substance: RITUXIMAB
  3. CYCLOPHOSPHAMIDE [Concomitant]
     Active Substance: CYCLOPHOSPHAMIDE
  4. DOXORUBICIN [Concomitant]
     Active Substance: DOXORUBICIN
  5. VINCRISTINE [Concomitant]
     Active Substance: VINCRISTINE
  6. PREDNISOLONE [Concomitant]
     Active Substance: PREDNISOLONE
  7. IFOSFAMIDE [Concomitant]
     Active Substance: IFOSFAMIDE
  8. IFOSFAMIDE [Concomitant]
     Active Substance: IFOSFAMIDE
     Indication: Haematopoietic stem cell mobilisation
  9. ETOPOSIDE [Concomitant]
     Active Substance: ETOPOSIDE
  10. CYTARABINE [Concomitant]
     Active Substance: CYTARABINE
  11. CISPLATIN [Concomitant]
     Active Substance: CISPLATIN
  12. PLERIXAFOR [Concomitant]
     Active Substance: PLERIXAFOR
     Indication: Haematopoietic stem cell mobilisation
  13. PLERIXAFOR [Concomitant]
     Active Substance: PLERIXAFOR

REACTIONS (1)
  - Drug ineffective [Fatal]
